FAERS Safety Report 8047419-8 (Version None)
Quarter: 2012Q1

REPORT INFORMATION
  Report Type: 
  Country: None (occurrence: None)
  Receive Date: 20120116
  Receipt Date: 20120102
  Transmission Date: 20120608
  Serious: Yes (Other)
  Sender: FDA-Public Use
  Company Number: DE-JNJFOC-20120103237

PATIENT
  Sex: Female
  Weight: 72 kg

DRUGS (2)
  1. XARELTO [Suspect]
     Indication: JOINT INJURY
     Route: 048
     Dates: start: 20111208, end: 20111214
  2. XARELTO [Suspect]
     Indication: LIGAMENT INJURY
     Route: 048
     Dates: start: 20111208, end: 20111214

REACTIONS (3)
  - HAEMORRHAGE IN PREGNANCY [None]
  - ABORTION SPONTANEOUS [None]
  - MATERNAL EXPOSURE DURING PREGNANCY [None]
